FAERS Safety Report 7436955-0 (Version None)
Quarter: 2011Q2

REPORT INFORMATION
  Report Type: 
  Country: None (occurrence: None)
  Receive Date: 20110426
  Receipt Date: 20110418
  Transmission Date: 20111010
  Serious: Yes (Hospitalization)
  Sender: FDA-Public Use
  Company Number: NL-AMGEN-NLDSP2011020846

PATIENT
  Age: 67 Year
  Sex: Male

DRUGS (15)
  1. METFORMIN [Concomitant]
     Dosage: UNK
  2. BUMETANIDE [Concomitant]
     Dosage: UNK
  3. MELOXICAM [Concomitant]
     Dosage: UNK
  4. INSULIN DETEMIR [Concomitant]
     Dosage: UNK
  5. COAPROVEL [Concomitant]
     Dosage: UNK
  6. OMEPRAZOLE [Concomitant]
     Dosage: UNK
  7. FERROFUMARAT [Concomitant]
     Dosage: UNK
  8. GLUCOSAMINE SULFATE [Concomitant]
     Dosage: UNK
  9. ARAVA [Concomitant]
     Dosage: UNK
  10. ACENOCOUMAROL [Concomitant]
     Dosage: UNK
  11. FISH OIL [Concomitant]
     Dosage: UNK
  12. AMIODARONE [Concomitant]
     Dosage: UNK
  13. INSULIN [Concomitant]
     Dosage: UNK
  14. CRESTOR [Concomitant]
     Dosage: UNK
  15. ENBREL [Suspect]
     Indication: ANKYLOSING SPONDYLITIS
     Dosage: 50 MG, WEEKLY
     Dates: start: 20110131, end: 20110404

REACTIONS (2)
  - KNEE OPERATION [None]
  - ARTHRALGIA [None]
